FAERS Safety Report 21031858 (Version 1)
Quarter: 2022Q3

REPORT INFORMATION
  Report Type: Spontaneous
  Country: US (occurrence: None)
  Receive Date: 20220701
  Receipt Date: 20220701
  Transmission Date: 20221027
  Serious: No
  Sender: FDA-Public Use
  Company Number: US-ROCHE-3014785

PATIENT
  Sex: Female

DRUGS (10)
  1. ACTEMRA [Suspect]
     Active Substance: TOCILIZUMAB
     Indication: Psoriatic arthropathy
     Route: 065
  2. HUMIRA [Concomitant]
     Active Substance: ADALIMUMAB
  3. METHOTREXATE [Concomitant]
     Active Substance: METHOTREXATE
  4. REMICADE [Concomitant]
     Active Substance: INFLIXIMAB
  5. ENBREL [Concomitant]
     Active Substance: ETANERCEPT
  6. CIMZIA [Concomitant]
     Active Substance: CERTOLIZUMAB PEGOL
  7. ORENCIA [Concomitant]
     Active Substance: ABATACEPT
  8. STELARA [Concomitant]
     Active Substance: USTEKINUMAB
  9. COSENTYX [Concomitant]
     Active Substance: SECUKINUMAB
  10. TREMFYA [Concomitant]
     Active Substance: GUSELKUMAB

REACTIONS (5)
  - Fracture [Unknown]
  - Stress fracture [Recovering/Resolving]
  - Back injury [Recovering/Resolving]
  - Arthralgia [Unknown]
  - Musculoskeletal stiffness [Unknown]
